FAERS Safety Report 8496537-9 (Version None)
Quarter: 2012Q3

REPORT INFORMATION
  Report Type: 
  Country: None (occurrence: None)
  Receive Date: 20120709
  Receipt Date: 20120704
  Transmission Date: 20120928
  Serious: Yes (Death, Hospitalization)
  Sender: FDA-Public Use
  Company Number: DE-ELI_LILLY_AND_COMPANY-DE201207001777

PATIENT
  Age: 79 Year
  Sex: Female
  Weight: 76 kg

DRUGS (3)
  1. EFFIENT [Suspect]
     Dosage: 10 MG, QD
     Route: 048
     Dates: start: 20120218
  2. ASPIRIN [Concomitant]
     Dosage: 100 MG, UNK
  3. EFFIENT [Suspect]
     Indication: STENT PLACEMENT
     Dosage: 60 MG, UNK
     Route: 048
     Dates: start: 20120217, end: 20120217

REACTIONS (2)
  - AORTIC VALVE STENOSIS [None]
  - DEATH [None]
